FAERS Safety Report 12313817 (Version 1)
Quarter: 2016Q2

REPORT INFORMATION
  Report Type: Spontaneous
  Country: US (occurrence: US)
  Receive Date: 20160428
  Receipt Date: 20160428
  Transmission Date: 20160815
  Serious: No
  Sender: FDA-Public Use
  Company Number: US-BAUSCH-BL-2015-013673

PATIENT
  Age: 45 Year
  Sex: Female

DRUGS (3)
  1. ZYCLARA [Suspect]
     Active Substance: IMIQUIMOD
     Indication: SKIN DISORDER
     Route: 061
     Dates: start: 201504, end: 20150510
  2. ZYCLARA [Suspect]
     Active Substance: IMIQUIMOD
     Route: 061
     Dates: start: 2015, end: 2015
  3. CLARITIN [Concomitant]
     Active Substance: LORATADINE
     Indication: PRODUCT USED FOR UNKNOWN INDICATION

REACTIONS (6)
  - Heart rate increased [Recovering/Resolving]
  - Off label use [Recovering/Resolving]
  - Anxiety [Recovering/Resolving]
  - Treatment noncompliance [Recovering/Resolving]
  - Feeling abnormal [Recovering/Resolving]
  - Back pain [Recovering/Resolving]
